FAERS Safety Report 21376934 (Version 1)
Quarter: 2022Q3

REPORT INFORMATION
  Report Type: Spontaneous
  Country: JP (occurrence: JP)
  Receive Date: 20220926
  Receipt Date: 20220926
  Transmission Date: 20221027
  Serious: Yes (Other)
  Sender: FDA-Public Use
  Company Number: JP-PFIZER INC-PV202200068546

PATIENT
  Sex: Male

DRUGS (1)
  1. CELECOXIB [Suspect]
     Active Substance: CELECOXIB
     Route: 048

REACTIONS (4)
  - Urinary retention [Unknown]
  - Dysuria [Unknown]
  - Benign prostatic hyperplasia [Unknown]
  - Prostatic specific antigen increased [Unknown]
